APPROVED DRUG PRODUCT: CELESTONE
Active Ingredient: BETAMETHASONE
Strength: 0.2%
Dosage Form/Route: CREAM;TOPICAL
Application: N014762 | Product #001
Applicant: SCHERING CORP SUB SCHERING PLOUGH CORP
Approved: Approved Prior to Jan 1, 1982 | RLD: No | RS: No | Type: DISCN